FAERS Safety Report 6332130-1 (Version None)
Quarter: 2009Q3

REPORT INFORMATION
  Report Type: 
  Country: None (occurrence: None)
  Receive Date: 20090827
  Receipt Date: 20090827
  Transmission Date: 20100115
  Serious: No
  Sender: FDA-Public Use
  Company Number: None

PATIENT

DRUGS (1)
  1. PHENYTOIN [Suspect]
     Indication: CRANIOTOMY
     Dosage: RANGE: 200-800MG DAILY

REACTIONS (1)
  - EPILEPSY [None]
